FAERS Safety Report 10798326 (Version 2)
Quarter: 2016Q1

REPORT INFORMATION
  Report Type: Spontaneous
  Country: US (occurrence: US)
  Receive Date: 20150216
  Receipt Date: 20160122
  Transmission Date: 20160525
  Serious: Yes (Hospitalization)
  Sender: FDA-Public Use
  Company Number: PHHY2015US016099

PATIENT
  Age: 17 Year
  Sex: Male

DRUGS (23)
  1. DEFERASIROX [Suspect]
     Active Substance: DEFERASIROX
     Dosage: 1000 MG, QD
     Route: 065
  2. DEFERASIROX [Suspect]
     Active Substance: DEFERASIROX
     Dosage: 0.2 MG, INTERVAL 3 DAYS
     Route: 065
  3. DEFERASIROX [Suspect]
     Active Substance: DEFERASIROX
     Dosage: 2 MG, INTERVAL 4 DAYS
     Route: 065
  4. DEFERASIROX [Suspect]
     Active Substance: DEFERASIROX
     Dosage: 8 MG, INTERVAL 4 DAYS
     Route: 065
  5. DEFERASIROX [Suspect]
     Active Substance: DEFERASIROX
     Dosage: 500 MG, INTERVAL 7 DAYS
     Route: 065
  6. METHOTREXATE [Concomitant]
     Active Substance: METHOTREXATE
     Indication: ACUTE LYMPHOCYTIC LEUKAEMIA RECURRENT
     Route: 065
  7. DEFERASIROX [Suspect]
     Active Substance: DEFERASIROX
     Dosage: 4 MG, INTERVAL 3 DAYS
     Route: 065
  8. DEFERASIROX [Suspect]
     Active Substance: DEFERASIROX
     Dosage: 125 MG, INTERVAL 4 DAYS
     Route: 065
  9. DEFERASIROX [Suspect]
     Active Substance: DEFERASIROX
     Dosage: 750 MG, INTERVAL 7 DAYS
     Route: 065
  10. DEFERASIROX [Suspect]
     Active Substance: DEFERASIROX
     Dosage: 0.5 MG, INTERVAL 4 DAYS
     Route: 065
  11. DEFERASIROX [Suspect]
     Active Substance: DEFERASIROX
     Dosage: 32 MG, INTERVAL 4 DAYS
     Route: 065
  12. DEFERASIROX [Suspect]
     Active Substance: DEFERASIROX
     Dosage: 1000 MG, INTERVAL 7 DAYS
     Route: 065
  13. DEFERASIROX [Suspect]
     Active Substance: DEFERASIROX
     Indication: IRON OVERLOAD
     Dosage: 500 MG, QD
     Route: 065
  14. DEFERASIROX [Suspect]
     Active Substance: DEFERASIROX
     Dosage: 0.05 MG, INTERVAL 3 DAYS
     Route: 065
  15. DEFERASIROX [Suspect]
     Active Substance: DEFERASIROX
     Dosage: 250 MG, INTERVAL 3 DAYS
     Route: 065
  16. 6-MERCAPTOPURINE MONOHYDRATE [Concomitant]
     Active Substance: MERCAPTOPURINE
     Indication: ACUTE LYMPHOCYTIC LEUKAEMIA RECURRENT
     Route: 065
  17. DEFERASIROX [Suspect]
     Active Substance: DEFERASIROX
     Dosage: 0.1 MG, INTERVAL 4 DAYS
     Route: 065
  18. DEFERASIROX [Suspect]
     Active Substance: DEFERASIROX
     Dosage: 16 MG, INTERVAL 3 DAYS
     Route: 065
  19. DEFERASIROX [Suspect]
     Active Substance: DEFERASIROX
     Dosage: 1500 MG, INTERVAL 7 DAYS
     Route: 065
  20. CETIRIZINE [Concomitant]
     Active Substance: CETIRIZINE HYDROCHLORIDE
     Indication: PRODUCT USED FOR UNKNOWN INDICATION
     Dosage: 10 MG, UNK
     Route: 065
  21. DEFERASIROX [Suspect]
     Active Substance: DEFERASIROX
     Dosage: 2000 MG, INTERVAL 7 DAYS
     Route: 065
  22. DEFERASIROX [Suspect]
     Active Substance: DEFERASIROX
     Dosage: 1 MG, INTERVAL 3 DAYS
     Route: 065
  23. DEFERASIROX [Suspect]
     Active Substance: DEFERASIROX
     Dosage: 64 MG, INTERVAL 3 DAYS
     Route: 065

REACTIONS (7)
  - Rash pruritic [Recovered/Resolved]
  - Nausea [Unknown]
  - Pyrexia [Unknown]
  - Flushing [Recovered/Resolved]
  - Drug intolerance [Unknown]
  - Rash maculo-papular [Recovered/Resolved]
  - Vomiting [Unknown]
